FAERS Safety Report 4462717-2 (Version None)
Quarter: 2004Q3

REPORT INFORMATION
  Report Type: 
  Country: None (occurrence: None)
  Receive Date: 20040927
  Receipt Date: 20040914
  Transmission Date: 20050211
  Serious: Yes (Hospitalization)
  Sender: FDA-Public Use
  Company Number: 202513

PATIENT
  Age: 51 Year
  Sex: Female

DRUGS (7)
  1. AVONEX [Suspect]
     Indication: MULTIPLE SCLEROSIS
     Dosage: 30 MCG QW IM
     Route: 030
     Dates: start: 20040429
  2. CYSTOSPAZ [Concomitant]
  3. NEURONTIN [Concomitant]
  4. TOPAMAX [Concomitant]
  5. SEROQUEL [Concomitant]
  6. BACLOFEN [Concomitant]
  7. XANAX [Concomitant]

REACTIONS (7)
  - ASTHENIA [None]
  - DYSSTASIA [None]
  - HYPOKALAEMIA [None]
  - KIDNEY INFECTION [None]
  - MULTIPLE SCLEROSIS RELAPSE [None]
  - URINARY INCONTINENCE [None]
  - URINARY TRACT INFECTION [None]
